FAERS Safety Report 17532502 (Version 1)
Quarter: 2020Q1

REPORT INFORMATION
  Report Type: Spontaneous
  Country: US (occurrence: US)
  Receive Date: 20200303
  Receipt Date: 20200303
  Transmission Date: 20200409
  Serious: Yes (Other)
  Sender: FDA-Public Use
  Company Number: None

PATIENT
  Age: 78 Year
  Sex: Female
  Weight: 74.39 kg

DRUGS (2)
  1. DESYREL [Suspect]
     Active Substance: TRAZODONE HYDROCHLORIDE
     Indication: INSOMNIA
     Dosage: ?          OTHER STRENGTH:50/100MG;QUANTITY:1 X DAY;?
     Route: 048
     Dates: start: 20200108, end: 20200127
  2. DESYREL [Suspect]
     Active Substance: TRAZODONE HYDROCHLORIDE
     Indication: ANXIETY
     Dosage: ?          OTHER STRENGTH:50/100MG;QUANTITY:1 X DAY;?
     Route: 048
     Dates: start: 20200108, end: 20200127

REACTIONS (2)
  - Therapeutic product effect incomplete [None]
  - Therapy change [None]

NARRATIVE: CASE EVENT DATE: 20200126
